FAERS Safety Report 12631295 (Version 2)
Quarter: 2016Q3

REPORT INFORMATION
  Report Type: Spontaneous
  Country: US (occurrence: US)
  Receive Date: 20160808
  Receipt Date: 20160808
  Transmission Date: 20161109
  Serious: No
  Sender: FDA-Public Use
  Company Number: US-BEH-2015053187

PATIENT
  Sex: Female
  Weight: 78 kg

DRUGS (24)
  1. METOPROLOL. [Concomitant]
     Active Substance: METOPROLOL
  2. NITROGLYCERIN. [Concomitant]
     Active Substance: NITROGLYCERIN
  3. CELEXA [Concomitant]
     Active Substance: CITALOPRAM HYDROBROMIDE
  4. EPIPEN [Concomitant]
     Active Substance: EPINEPHRINE
     Indication: ANAPHYLACTIC REACTION
  5. LISINOPRIL. [Concomitant]
     Active Substance: LISINOPRIL
  6. ASPIRIN. [Concomitant]
     Active Substance: ASPIRIN
  7. ACETAMINOPHEN. [Concomitant]
     Active Substance: ACETAMINOPHEN
  8. DIPHENHYDRAMINE. [Concomitant]
     Active Substance: DIPHENHYDRAMINE
  9. LIDOCAINE / PRILOCAINE [Concomitant]
  10. PREDNISONE. [Concomitant]
     Active Substance: PREDNISONE
  11. OXYCODONE [Concomitant]
     Active Substance: OXYCODONE
  12. SIMVASTATIN. [Concomitant]
     Active Substance: SIMVASTATIN
  13. PROAIR HFA [Concomitant]
     Active Substance: ALBUTEROL SULFATE
  14. HIZENTRA [Suspect]
     Active Substance: HUMAN IMMUNOGLOBULIN G
     Indication: IMMUNODEFICIENCY COMMON VARIABLE
     Route: 058
  15. MELOXICAM. [Concomitant]
     Active Substance: MELOXICAM
  16. ZOLOFT [Concomitant]
     Active Substance: SERTRALINE HYDROCHLORIDE
  17. CLARITHROMYCIN. [Concomitant]
     Active Substance: CLARITHROMYCIN
  18. FLONASE [Concomitant]
     Active Substance: FLUTICASONE PROPIONATE
  19. ALBUTEROL. [Concomitant]
     Active Substance: ALBUTEROL
  20. CALCIUM [Concomitant]
     Active Substance: CALCIUM
  21. ALLEGRA [Concomitant]
     Active Substance: FEXOFENADINE HYDROCHLORIDE
  22. HYDROCODONE [Concomitant]
     Active Substance: HYDROCODONE
  23. MELATONIN [Concomitant]
     Active Substance: MELATONIN
  24. NEXIUM [Concomitant]
     Active Substance: ESOMEPRAZOLE MAGNESIUM

REACTIONS (2)
  - Infusion site erythema [Unknown]
  - Infusion site swelling [Unknown]
